FAERS Safety Report 7945508-7 (Version None)
Quarter: 2011Q4

REPORT INFORMATION
  Report Type: 
  Country: None (occurrence: None)
  Receive Date: 20111129
  Receipt Date: 20111122
  Transmission Date: 20120403
  Serious: Yes (Hospitalization)
  Sender: FDA-Public Use
  Company Number: US-UCBSA-045433

PATIENT
  Sex: Male

DRUGS (1)
  1. CIMZIA [Suspect]
     Indication: CROHN'S DISEASE
     Route: 058

REACTIONS (4)
  - ABDOMINAL WALL ABSCESS [None]
  - RENAL FAILURE ACUTE [None]
  - CROHN'S DISEASE [None]
  - STAPHYLOCOCCAL INFECTION [None]
